FAERS Safety Report 7805357-7 (Version None)
Quarter: 2011Q4

REPORT INFORMATION
  Report Type: 
  Country: None (occurrence: None)
  Receive Date: 20111010
  Receipt Date: 20110506
  Transmission Date: 20120403
  Serious: Yes (Other)
  Sender: FDA-Public Use
  Company Number: US-PFIZER INC-HQWYE988313SEP04

PATIENT
  Sex: Female
  Weight: 86.8 kg

DRUGS (10)
  1. VITAMIN B-12 [Concomitant]
     Dosage: UNKNOWN DOSE DAILY
     Route: 048
  2. ALBUTEROL [Concomitant]
     Indication: DYSPNOEA
     Dosage: UNKNOWN DOSE AS NEEDED
     Route: 055
     Dates: start: 20040720, end: 20040915
  3. ADVAIR DISKUS 100/50 [Concomitant]
     Dosage: 150/50, TWICE A DAY
     Route: 065
  4. DESVENLAFAXINE SUCCINATE MONOHYDRATE [Suspect]
     Indication: MENOPAUSAL SYMPTOMS
     Dosage: 150 MG, 1X/DAY
     Route: 048
     Dates: start: 20040116, end: 20040817
  5. GINKGO BILOBA [Concomitant]
     Dosage: 120 MG, 1X/DAY
     Route: 048
  6. MULTI-VITAMINS [Concomitant]
     Dosage: 1 DF, 1X/DAY
     Route: 048
  7. MACROBID [Suspect]
     Indication: INFECTION PROPHYLAXIS
     Dosage: ONE PILL (STRENGTH UNKNOWN) DAILY
     Route: 048
     Dates: start: 20030501, end: 20040913
  8. ACETYLSALICYLIC ACID [Concomitant]
     Dosage: 81 MG, 1X/DAY
     Route: 048
  9. VITAMIN E [Concomitant]
     Dosage: 400 IU, 1X/DAY
     Route: 048
  10. GARLIC [Concomitant]
     Dosage: 1 DF, 1X/DAY
     Route: 048

REACTIONS (1)
  - HEPATITIS CHOLESTATIC [None]
